FAERS Safety Report 5182682-2 (Version None)
Quarter: 2006Q4

REPORT INFORMATION
  Report Type: 
  Country: None (occurrence: None)
  Receive Date: 20061211
  Receipt Date: 20061129
  Transmission Date: 20070319
  Serious: No
  Sender: FDA-Public Use
  Company Number: E2090-00145-SPO-JP

PATIENT
  Age: 9 Year
  Sex: Male

DRUGS (3)
  1. ZONISAMIDE [Suspect]
     Indication: EPILEPSY
     Dosage: 6 MG/KG, ORAL
     Route: 048
     Dates: start: 20061101, end: 20061101
  2. VALPROATE SODIUM [Concomitant]
  3. CARBAMAZEPINE [Concomitant]

REACTIONS (1)
  - ATTENTION DEFICIT/HYPERACTIVITY DISORDER [None]
